FAERS Safety Report 12502181 (Version 1)
Quarter: 2016Q2

REPORT INFORMATION
  Report Type: Spontaneous
  Country: US (occurrence: US)
  Receive Date: 20160627
  Receipt Date: 20160627
  Transmission Date: 20160815
  Serious: Yes (Death, Other)
  Sender: FDA-Public Use
  Company Number: PHHY2016US085868

PATIENT
  Age: 57 Year
  Sex: Female

DRUGS (2)
  1. WARFARIN [Suspect]
     Active Substance: WARFARIN
     Indication: PRODUCT USED FOR UNKNOWN INDICATION
     Route: 065
  2. LEVOFLOXACIN. [Concomitant]
     Active Substance: LEVOFLOXACIN
     Indication: STENOTROPHOMONAS INFECTION
     Route: 065

REACTIONS (4)
  - Calciphylaxis [Unknown]
  - Sepsis [Fatal]
  - International normalised ratio increased [Unknown]
  - Condition aggravated [Fatal]
